FAERS Safety Report 14308985 (Version 1)
Quarter: 2017Q4

REPORT INFORMATION
  Report Type: Spontaneous
  Country: US (occurrence: US)
  Receive Date: 20171220
  Receipt Date: 20171220
  Transmission Date: 20180321
  Serious: No
  Sender: FDA-Public Use
  Company Number: US-VERTEX PHARMACEUTICALS-2017-007029

PATIENT
  Sex: Male

DRUGS (2)
  1. ORKAMBI [Suspect]
     Active Substance: IVACAFTOR\LUMACAFTOR
     Indication: CYSTIC FIBROSIS
     Dosage: 200/125 MG TABLETS, BID
     Route: 048
     Dates: start: 201711
  2. ORKAMBI [Suspect]
     Active Substance: IVACAFTOR\LUMACAFTOR
     Dosage: HALF DOSE
     Route: 048

REACTIONS (2)
  - Musculoskeletal discomfort [Unknown]
  - Back pain [Unknown]

NARRATIVE: CASE EVENT DATE: 2017
